FAERS Safety Report 10098131 (Version 1)
Quarter: 2014Q2

REPORT INFORMATION
  Report Type: Spontaneous
  Country: US (occurrence: US)
  Receive Date: 20140423
  Receipt Date: 20140423
  Transmission Date: 20141212
  Serious: Yes (Other)
  Sender: FDA-Public Use
  Company Number: US-RB-065229-14

PATIENT
  Age: 68 Year
  Sex: Female

DRUGS (3)
  1. MUCINEX D [Suspect]
     Indication: SINUS DISORDER
     Dosage: TOOK 2 TABLETS 1 TIME ON 15-APR-2014
     Route: 048
     Dates: start: 20140415
  2. MUCINEX D [Suspect]
     Indication: SINUS DISORDER
     Dosage: TOOK 2 TABLETS 1 TIME ON 15-APR-2014
     Route: 048
     Dates: start: 20140415
  3. TRAMADOL [Concomitant]
     Indication: BACK DISORDER
     Dosage: TAKES PRODUCT DAILY. LAST USED PRODUCT ON 15-APR-2014.

REACTIONS (12)
  - Anxiety [Unknown]
  - Dyskinesia [Unknown]
  - Agitation [Unknown]
  - Muscle twitching [Unknown]
  - Tremor [Unknown]
  - Feeling abnormal [Unknown]
  - Abnormal dreams [Unknown]
  - Insomnia [Unknown]
  - Fatigue [Unknown]
  - Drug ineffective [Unknown]
  - Unevaluable event [Unknown]
  - Off label use [Unknown]
